FAERS Safety Report 24309662 (Version 1)
Quarter: 2024Q3

REPORT INFORMATION
  Report Type: Spontaneous
  Country: US (occurrence: US)
  Receive Date: 20240912
  Receipt Date: 20240912
  Transmission Date: 20241016
  Serious: Yes (Life-Threatening, Hospitalization, Other)
  Sender: RANBAXY
  Company Number: US-SUN PHARMACEUTICAL INDUSTRIES LTD-2024R1-467037

PATIENT
  Age: 52 Year
  Sex: Male

DRUGS (1)
  1. NICARDIPINE [Suspect]
     Active Substance: NICARDIPINE
     Indication: Blood pressure increased
     Dosage: 2.5 MG/H
     Route: 042

REACTIONS (1)
  - Anaphylactoid reaction [Recovered/Resolved]
